FAERS Safety Report 14575614 (Version 1)
Quarter: 2018Q1

REPORT INFORMATION
  Report Type: Report from Study
  Country: IT (occurrence: IT)
  Receive Date: 20180227
  Receipt Date: 20180227
  Transmission Date: 20180509
  Serious: Yes (Hospitalization)
  Sender: FDA-Public Use
  Company Number: IT-ACCORD-063869

PATIENT
  Age: 68 Year
  Sex: Male
  Weight: 84 kg

DRUGS (7)
  1. FLUOROURACIL. [Suspect]
     Active Substance: FLUOROURACIL
     Indication: COLORECTAL CANCER METASTATIC
     Dosage: ALSO RECEIVED 4800 MG BY INTRAVENOUS DRIP ON 04-MAY-2015
     Route: 040
     Dates: start: 20150504, end: 20150504
  2. PANTOPRAZOLE [Concomitant]
     Active Substance: PANTOPRAZOLE
     Dates: start: 20150310
  3. IRINOTECAN [Suspect]
     Active Substance: IRINOTECAN
     Indication: COLORECTAL CANCER METASTATIC
     Route: 041
     Dates: start: 20150504, end: 20150504
  4. DEXAMETHASONE SODIUM PHOSPHATE. [Concomitant]
     Active Substance: DEXAMETHASONE SODIUM PHOSPHATE
     Dosage: ()
     Route: 065
     Dates: start: 20150504, end: 20150513
  5. LEUCOVORIN. [Suspect]
     Active Substance: LEUCOVORIN
     Indication: COLORECTAL CANCER METASTATIC
     Route: 041
     Dates: start: 20150504, end: 20150504
  6. ZALTRAP [Suspect]
     Active Substance: ZIV-AFLIBERCEPT
     Indication: COLORECTAL CANCER METASTATIC
     Route: 041
     Dates: start: 20150504, end: 20150504
  7. ATROPINE. [Concomitant]
     Active Substance: ATROPINE
     Route: 065
     Dates: start: 20150504, end: 20150513

REACTIONS (6)
  - Jugular vein thrombosis [Not Recovered/Not Resolved]
  - Depressed level of consciousness [Recovered/Resolved]
  - Decreased appetite [Recovered/Resolved]
  - Superior vena cava syndrome [Recovered/Resolved with Sequelae]
  - Subclavian vein thrombosis [Not Recovered/Not Resolved]
  - Asthenia [Recovered/Resolved]

NARRATIVE: CASE EVENT DATE: 20150513
